FAERS Safety Report 14237951 (Version 2)
Quarter: 2017Q4

REPORT INFORMATION
  Report Type: Report from Study
  Country: None (occurrence: CA)
  Receive Date: 20171130
  Receipt Date: 20171213
  Transmission Date: 20180321
  Serious: Yes (Other)
  Sender: FDA-Public Use
  Company Number: CA-ABBVIE-17K-028-2174481-00

PATIENT
  Sex: Male

DRUGS (1)
  1. HUMIRA [Suspect]
     Active Substance: ADALIMUMAB
     Indication: ANKYLOSING SPONDYLITIS
     Route: 058
     Dates: start: 20110429

REACTIONS (19)
  - Paranasal sinus discomfort [Recovered/Resolved]
  - Therapeutic response shortened [Not Recovered/Not Resolved]
  - Joint range of motion decreased [Not Recovered/Not Resolved]
  - Splenomegaly [Not Recovered/Not Resolved]
  - Epistaxis [Recovered/Resolved]
  - Musculoskeletal chest pain [Not Recovered/Not Resolved]
  - Nasal polyps [Unknown]
  - Nasal septum deviation [Unknown]
  - Pancreatic enlargement [Not Recovered/Not Resolved]
  - Visual impairment [Unknown]
  - Dry eye [Not Recovered/Not Resolved]
  - Ankylosing spondylitis [Not Recovered/Not Resolved]
  - Hepatomegaly [Not Recovered/Not Resolved]
  - Ocular discomfort [Unknown]
  - Ocular hyperaemia [Not Recovered/Not Resolved]
  - Vision blurred [Unknown]
  - Musculoskeletal pain [Not Recovered/Not Resolved]
  - Back pain [Not Recovered/Not Resolved]
  - Headache [Not Recovered/Not Resolved]

NARRATIVE: CASE EVENT DATE: 2016
